FAERS Safety Report 7198029-6 (Version None)
Quarter: 2010Q4

REPORT INFORMATION
  Report Type: 
  Country: None (occurrence: None)
  Receive Date: 20101227
  Receipt Date: 20101221
  Transmission Date: 20110411
  Serious: Yes (Other)
  Sender: FDA-Public Use
  Company Number: CN-ROCHE-749556

PATIENT
  Sex: Female

DRUGS (3)
  1. MYCOPHENOLATE MOFETIL [Suspect]
     Indication: RENAL TRANSPLANT
     Route: 065
     Dates: start: 20081207
  2. CYCLOSPORINE [Concomitant]
     Indication: RENAL TRANSPLANT
  3. STEROID NOS [Concomitant]
     Indication: RENAL TRANSPLANT

REACTIONS (2)
  - NEPHRECTOMY [None]
  - URETERIC OBSTRUCTION [None]
